FAERS Safety Report 7529407-0 (Version None)
Quarter: 2011Q2

REPORT INFORMATION
  Report Type: 
  Country: None (occurrence: None)
  Receive Date: 20110607
  Receipt Date: 20110602
  Transmission Date: 20111010
  Serious: Yes (Other)
  Sender: FDA-Public Use
  Company Number: US-B.I. PHARMACEUTICALS,INC./RIDGEFIELD-2011-BP-14516BP

PATIENT
  Age: 52 Year
  Sex: Male

DRUGS (3)
  1. ADVAIR DISKUS 100/50 [Concomitant]
     Indication: ASTHMA
     Route: 055
  2. SPIRIVA [Suspect]
     Indication: RESTRICTIVE PULMONARY DISEASE
     Dosage: 18 MCG
     Route: 055
  3. ADVAIR DISKUS 100/50 [Concomitant]
     Indication: RESTRICTIVE PULMONARY DISEASE

REACTIONS (1)
  - CHEST PAIN [None]
